FAERS Safety Report 5026879-0 (Version None)
Quarter: 2006Q2

REPORT INFORMATION
  Report Type: 
  Country: None (occurrence: None)
  Receive Date: 20060609
  Receipt Date: 20060602
  Transmission Date: 20061013
  Serious: Yes (Hospitalization, Other)
  Sender: FDA-Public Use
  Company Number: HQWYE012527APR06

PATIENT
  Age: 36 Year
  Sex: Male

DRUGS (1)
  1. RAPAMUNE                               (SIROLIMUS) [Suspect]
     Indication: PROPHYLAXIS AGAINST TRANSPLANT REJECTION
     Dosage: PER PROTOCOL
     Dates: start: 20051209, end: 20060329

REACTIONS (1)
  - KIDNEY TRANSPLANT REJECTION [None]
